FAERS Safety Report 22183742 (Version 2)
Quarter: 2023Q2

REPORT INFORMATION
  Report Type: Spontaneous
  Country: PL (occurrence: PL)
  Receive Date: 20230406
  Receipt Date: 20230510
  Transmission Date: 20230721
  Serious: Yes (Other)
  Sender: FDA-Public Use
  Company Number: PL-GILEAD-2023-0622750

PATIENT
  Age: 41 Year
  Sex: Male

DRUGS (4)
  1. VIREAD [Suspect]
     Active Substance: TENOFOVIR DISOPROXIL FUMARATE
     Indication: HIV infection
     Dosage: UNK
     Route: 065
     Dates: start: 2010
  2. EPIVIR [Concomitant]
     Active Substance: LAMIVUDINE
  3. INVIRASE [Concomitant]
     Active Substance: SAQUINAVIR MESYLATE
  4. NORVIR [Concomitant]
     Active Substance: RITONAVIR

REACTIONS (14)
  - Blindness traumatic [Unknown]
  - Eye injury [Unknown]
  - Erectile dysfunction [Unknown]
  - Spinal fracture [Unknown]
  - Sleep apnoea syndrome [Unknown]
  - Insulin resistance [Unknown]
  - Glucose tolerance impaired [Unknown]
  - Hyperlipidaemia [Unknown]
  - Hypertension [Unknown]
  - Exostosis [Unknown]
  - Back pain [Unknown]
  - Sciatica [Unknown]
  - Weight increased [Unknown]
  - Varicose vein [Unknown]

NARRATIVE: CASE EVENT DATE: 20110101
